FAERS Safety Report 11881603 (Version 1)
Quarter: 2015Q4

REPORT INFORMATION
  Report Type: Spontaneous
  Country: US (occurrence: None)
  Receive Date: 20151230
  Receipt Date: 20151230
  Transmission Date: 20160305
  Serious: No
  Sender: FDA-Public Use
  Company Number: None

PATIENT
  Age: 51 Year
  Sex: Female

DRUGS (1)
  1. AMPYRA [Suspect]
     Active Substance: DALFAMPRIDINE
     Route: 048
     Dates: start: 201205

REACTIONS (4)
  - Culture urine positive [None]
  - Pollakiuria [None]
  - Dysuria [None]
  - Micturition urgency [None]

NARRATIVE: CASE EVENT DATE: 20151112
